FAERS Safety Report 8362326-9 (Version None)
Quarter: 2012Q2

REPORT INFORMATION
  Report Type: 
  Country: None (occurrence: None)
  Receive Date: 20120516
  Receipt Date: 20120504
  Transmission Date: 20120825
  Serious: Yes (Other)
  Sender: FDA-Public Use
  Company Number: FR-BRISTOL-MYERS SQUIBB COMPANY-16587339

PATIENT
  Age: 58 Year
  Sex: Male

DRUGS (4)
  1. CETUXIMAB [Suspect]
     Indication: HEAD AND NECK CANCER
     Dosage: X1 CYCLE
     Dates: start: 20101102, end: 20101220
  2. CISPLATIN [Suspect]
     Indication: HEAD AND NECK CANCER
     Dosage: 1/CYCLE
     Dates: start: 20100825, end: 20101007
  3. FLUOROURACIL [Suspect]
     Indication: HEAD AND NECK CANCER
     Dosage: 5/CYCLE
     Dates: start: 20100825, end: 20101011
  4. DOCETAXEL [Suspect]
     Indication: HEAD AND NECK CANCER
     Dosage: 1/CYCLE
     Dates: start: 20100825, end: 20101007

REACTIONS (4)
  - MUCOSAL INFLAMMATION [None]
  - DIARRHOEA [None]
  - DEVICE RELATED INFECTION [None]
  - DYSPHAGIA [None]
